FAERS Safety Report 8094163-7 (Version None)
Quarter: 2012Q1

REPORT INFORMATION
  Report Type: 
  Country: None (occurrence: None)
  Receive Date: 20120130
  Receipt Date: 20120130
  Transmission Date: 20120608
  Serious: No
  Sender: FDA-Public Use
  Company Number: None

PATIENT
  Age: 66 Year
  Sex: Male
  Weight: 122.46 kg

DRUGS (1)
  1. SALONPAS [Suspect]

REACTIONS (3)
  - PRODUCT QUALITY ISSUE [None]
  - SKIN HAEMORRHAGE [None]
  - APPLICATION SITE REACTION [None]
